FAERS Safety Report 8157176-2 (Version None)
Quarter: 2012Q1

REPORT INFORMATION
  Report Type: 
  Country: None (occurrence: None)
  Receive Date: 20120222
  Receipt Date: 20120221
  Transmission Date: 20120608
  Serious: Yes (Other)
  Sender: FDA-Public Use
  Company Number: LB-ROCHE-1038969

PATIENT
  Sex: Female

DRUGS (3)
  1. ZOMETA [Suspect]
     Indication: BREAST CANCER RECURRENT
  2. AVASTIN [Suspect]
     Indication: BREAST CANCER RECURRENT
  3. XELODA [Concomitant]
     Indication: BREAST CANCER RECURRENT

REACTIONS (2)
  - OSTEONECROSIS OF JAW [None]
  - OTITIS EXTERNA [None]
